FAERS Safety Report 10259298 (Version 2)
Quarter: 2014Q2

REPORT INFORMATION
  Report Type: Spontaneous
  Country: US (occurrence: US)
  Receive Date: 20140625
  Receipt Date: 20140625
  Transmission Date: 20141212
  Serious: No
  Sender: FDA-Public Use
  Company Number: US-ASTELLAS-2013US013179

PATIENT
  Sex: Female

DRUGS (2)
  1. VESICARE [Suspect]
     Indication: URINARY TRACT DISORDER
     Dosage: 10 MG, 1 TABLET IN MORNING
     Route: 048
     Dates: start: 201212
  2. DETROL [Concomitant]
     Indication: URINARY TRACT DISORDER
     Dosage: UNK, EVERY NIGHT
     Route: 065
     Dates: end: 201312

REACTIONS (1)
  - Drug ineffective [Unknown]
